FAERS Safety Report 12979848 (Version 2)
Quarter: 2017Q1

REPORT INFORMATION
  Report Type: Report from Study
  Country: US (occurrence: US)
  Receive Date: 20161128
  Receipt Date: 20170117
  Transmission Date: 20170428
  Serious: Yes (Other)
  Sender: FDA-Public Use
  Company Number: US-MALLINCKRODT-T201606006

PATIENT
  Age: 46 Year
  Sex: Female

DRUGS (1)
  1. REPOSITORY CORTICOTROPIN INJECTION [Suspect]
     Active Substance: CORTICOTROPIN
     Indication: SARCOIDOSIS
     Dosage: 80U TWICE WEEKLY FOR 12 WEEKS
     Route: 058
     Dates: start: 20160701, end: 20161022

REACTIONS (5)
  - Nausea [Recovering/Resolving]
  - Haematemesis [Recovering/Resolving]
  - Asthenia [Recovering/Resolving]
  - Blood glucose increased [Recovering/Resolving]
  - Therapy cessation [Unknown]

NARRATIVE: CASE EVENT DATE: 2016
